FAERS Safety Report 4651075-6 (Version None)
Quarter: 2005Q2

REPORT INFORMATION
  Report Type: 
  Country: None (occurrence: None)
  Receive Date: 20050429
  Receipt Date: 20050422
  Transmission Date: 20051028
  Serious: Yes (Other)
  Sender: FDA-Public Use
  Company Number: 2005063311

PATIENT
  Sex: Female

DRUGS (17)
  1. NEURONTIN [Suspect]
     Indication: RESTLESS LEGS SYNDROME
     Dosage: 900 MG (900 MG, 1 IN 1 D), ORAL
     Route: 048
  2. GABAPENTIN [Suspect]
     Indication: RESTLESS LEGS SYNDROME
     Dosage: 900 MG (900 MG, 1 IN 1 D),ORAL
     Route: 048
     Dates: start: 20050401, end: 20050401
  3. GLIPIZIDE [Concomitant]
  4. METFORMIN HCL [Concomitant]
  5. LEVOTHYROXINE SODIUM [Concomitant]
  6. MEDROXYPROGESTERONE ACETATE [Concomitant]
  7. ESTRADIOL [Concomitant]
  8. FOLIC ACID [Concomitant]
  9. METHOTREXATE [Concomitant]
  10. MULTIVITAMINS (ASCORBIC ACID, ERGOCALCIFEROL, FOLIC ACID, NICOTINAMIDE [Concomitant]
  11. LATANOPROST [Concomitant]
  12. ALPRAZOLAM [Concomitant]
  13. LOMOITIL (ATROPINE SULFATE, DIPHENOXYLATE HYDROCHLORIDE) [Concomitant]
  14. GALENIC /PARACETAMOL/CODEINE/ (CODEINE, PARACETAMOL) [Concomitant]
  15. APOREX (DEXTROPROPOXYPHENE HYDROCHLORIDE, PARACETAMOL) [Concomitant]
  16. RESPAIRE-SR-120 (GUAIFENESIN, PSEUDOSPHEDRINE HYDROCHLORIDE) [Concomitant]
  17. VICODIN (HYDROCHLORIDE BITARTRATE, PARACEMATOL) [Concomitant]

REACTIONS (10)
  - ASTHENIA [None]
  - CONDITION AGGRAVATED [None]
  - DRUG EFFECT DECREASED [None]
  - DRUG INEFFECTIVE [None]
  - FATIGUE [None]
  - FEELING ABNORMAL [None]
  - PHARMACEUTICAL PRODUCT COMPLAINT [None]
  - SLEEP APNOEA SYNDROME [None]
  - SOMNOLENCE [None]
  - WEIGHT DECREASED [None]
